FAERS Safety Report 14968925 (Version 1)
Quarter: 2018Q2

REPORT INFORMATION
  Report Type: Spontaneous
  Country: US (occurrence: US)
  Receive Date: 20180511
  Receipt Date: 20180511
  Transmission Date: 20180711
  Serious: Yes (Disabling, Other)
  Sender: FDA-Public Use
  Company Number: None

PATIENT
  Age: 86 Year
  Sex: Female
  Weight: 61.23 kg

DRUGS (4)
  1. SPECIAL TEAS [Concomitant]
  2. FISH OIL [Concomitant]
     Active Substance: FISH OIL
  3. PREMARIN [Suspect]
     Active Substance: ESTROGENS, CONJUGATED
     Indication: MENOPAUSE
     Route: 048
     Dates: start: 197101, end: 1976
  4. PREMARIN [Suspect]
     Active Substance: ESTROGENS, CONJUGATED
     Indication: HYSTERECTOMY
     Route: 048
     Dates: start: 197101, end: 1976

REACTIONS (3)
  - Poliomyelitis [None]
  - Multiple allergies [None]
  - Condition aggravated [None]

NARRATIVE: CASE EVENT DATE: 197104
